FAERS Safety Report 5578126-9 (Version None)
Quarter: 2007Q4

REPORT INFORMATION
  Report Type: 
  Country: None (occurrence: None)
  Receive Date: 20071130
  Receipt Date: 20070724
  Transmission Date: 20080405
  Serious: No
  Sender: FDA-Public Use
  Company Number: US200707005335

PATIENT
  Age: 62 Year
  Sex: Female
  Weight: 88.4 kg

DRUGS (3)
  1. BYETTA [Suspect]
     Indication: TYPE 2 DIABETES MELLITUS
     Dosage: 10 UG, 2/D, SUBCUTANEOUS
     Route: 058
     Dates: start: 20061201, end: 20070701
  2. METFORMIN HCL [Concomitant]
  3. GLIPIZIDE [Concomitant]

REACTIONS (9)
  - BLOOD GLUCOSE DECREASED [None]
  - BLOOD GLUCOSE INCREASED [None]
  - DECREASED APPETITE [None]
  - DIZZINESS [None]
  - DRUG EFFECT DECREASED [None]
  - FEELING ABNORMAL [None]
  - HYPERHIDROSIS [None]
  - INCREASED APPETITE [None]
  - WEIGHT DECREASED [None]
